FAERS Safety Report 24566949 (Version 1)
Quarter: 2024Q4

REPORT INFORMATION
  Report Type: Spontaneous
  Country: CN (occurrence: CN)
  Receive Date: 20241030
  Receipt Date: 20241030
  Transmission Date: 20250115
  Serious: Yes (Other)
  Sender: NOVARTIS
  Company Number: CN-002147023-NVSC2024CN209377

PATIENT
  Age: 57 Year
  Sex: Female
  Weight: 49.5 kg

DRUGS (2)
  1. GLIVEC [Suspect]
     Active Substance: IMATINIB MESYLATE
     Indication: Malignant mesenchymoma
     Dosage: 0.2 G, BID
     Route: 048
     Dates: start: 20240701, end: 20241014
  2. GLIVEC [Suspect]
     Active Substance: IMATINIB MESYLATE
     Indication: Symptomatic treatment

REACTIONS (5)
  - Drug eruption [Recovering/Resolving]
  - Face oedema [Unknown]
  - Skin plaque [Unknown]
  - Rash [Recovering/Resolving]
  - Pruritus [Recovered/Resolved]

NARRATIVE: CASE EVENT DATE: 20240915
